FAERS Safety Report 7421630-9 (Version None)
Quarter: 2011Q2

REPORT INFORMATION
  Report Type: 
  Country: None (occurrence: None)
  Receive Date: 20110418
  Receipt Date: 20110407
  Transmission Date: 20111010
  Serious: Yes (Other)
  Sender: FDA-Public Use
  Company Number: US-ELI_LILLY_AND_COMPANY-US201104003477

PATIENT
  Age: 64 Year
  Sex: Female

DRUGS (2)
  1. GEMZAR [Suspect]
     Indication: LUNG ADENOCARCINOMA
     Dosage: 860/M2, UNK
     Route: 042
     Dates: start: 20110114, end: 20110225
  2. CARBOPLATIN [Concomitant]
     Dosage: 380 DF, UNK
     Route: 042

REACTIONS (2)
  - PNEUMONIA MYCOPLASMAL [None]
  - THROMBOCYTOPENIA [None]
